FAERS Safety Report 8056625-8 (Version None)
Quarter: 2012Q1

REPORT INFORMATION
  Report Type: 
  Country: None (occurrence: None)
  Receive Date: 20120119
  Receipt Date: 20120110
  Transmission Date: 20120608
  Serious: Yes (Other)
  Sender: FDA-Public Use
  Company Number: CHPA2012US000883

PATIENT
  Age: 32 Year
  Sex: Female

DRUGS (2)
  1. EXCEDRIN (MIGRAINE) [Suspect]
     Indication: MIGRAINE
     Dosage: 2 DF, 1-3 TIMES PER DAY
     Route: 048
     Dates: start: 20111201, end: 20120110
  2. CONTRACEPTIVES [Concomitant]
     Indication: CONTRACEPTION
     Dosage: 1 DF, QD
     Dates: end: 20111201

REACTIONS (4)
  - CHEST PAIN [None]
  - OVERDOSE [None]
  - RENAL PAIN [None]
  - CHEST DISCOMFORT [None]
